FAERS Safety Report 17328151 (Version 1)
Quarter: 2020Q1

REPORT INFORMATION
  Report Type: Spontaneous
  Country: US (occurrence: US)
  Receive Date: 20200127
  Receipt Date: 20200127
  Transmission Date: 20200409
  Serious: Yes (Death)
  Sender: FDA-Public Use
  Company Number: US-PERRIGO-20US001229

PATIENT
  Age: 29 Year
  Sex: Male

DRUGS (8)
  1. HYDROXYZINE [Suspect]
     Active Substance: HYDROXYZINE HYDROCHLORIDE
     Indication: SUSPECTED SUICIDE
     Dosage: UNK
     Route: 048
  2. ATOMOXETINE. [Suspect]
     Active Substance: ATOMOXETINE HYDROCHLORIDE
     Indication: SUSPECTED SUICIDE
     Dosage: UNK
     Route: 048
  3. CLOMIPRAMINE [Suspect]
     Active Substance: CLOMIPRAMINE
     Indication: SUSPECTED SUICIDE
     Dosage: UNK
     Route: 048
  4. PERPHENAZINE. [Suspect]
     Active Substance: PERPHENAZINE
     Indication: SUSPECTED SUICIDE
     Dosage: UNK
     Route: 048
  5. CLONAZEPAM. [Suspect]
     Active Substance: CLONAZEPAM
     Indication: SUSPECTED SUICIDE
     Dosage: UNK
     Route: 048
  6. CETIRIZINE HYDROCHLORIDE. [Suspect]
     Active Substance: CETIRIZINE HYDROCHLORIDE
     Indication: SUSPECTED SUICIDE
     Dosage: UNK
     Route: 048
  7. ALLERGY [Suspect]
     Active Substance: UNSPECIFIED INGREDIENT
     Indication: SUSPECTED SUICIDE
     Dosage: UNK
     Route: 048
  8. PAROXETINE. [Suspect]
     Active Substance: PAROXETINE
     Indication: SUSPECTED SUICIDE
     Dosage: UNK
     Route: 048

REACTIONS (1)
  - Toxicity to various agents [Fatal]
